FAERS Safety Report 14447820 (Version 2)
Quarter: 2018Q1

REPORT INFORMATION
  Report Type: Spontaneous
  Country: IT (occurrence: IT)
  Receive Date: 20180126
  Receipt Date: 20180330
  Transmission Date: 20180509
  Serious: Yes (Other)
  Sender: FDA-Public Use
  Company Number: IT-SA-2018SA015010

PATIENT
  Age: 76 Year
  Sex: Male

DRUGS (8)
  1. TORVAST [Concomitant]
     Active Substance: ATORVASTATIN
  2. ZYLORIC [Concomitant]
     Active Substance: ALLOPURINOL
  3. HUMALOG [Concomitant]
     Active Substance: INSULIN LISPRO
     Route: 065
  4. RAMIPRIL. [Concomitant]
     Active Substance: RAMIPRIL
  5. TRESIBA [Concomitant]
     Active Substance: INSULIN DEGLUDEC
     Route: 065
  6. CARDIOASPIRIN [Suspect]
     Active Substance: ASPIRIN
     Indication: THROMBOSIS PROPHYLAXIS
     Route: 048
     Dates: start: 20170101, end: 20171004
  7. ALLOPURINOL. [Concomitant]
     Active Substance: ALLOPURINOL
  8. PLAVIX [Suspect]
     Active Substance: CLOPIDOGREL BISULFATE
     Indication: THROMBOSIS PROPHYLAXIS
     Route: 048
     Dates: start: 20170101, end: 20171004

REACTIONS (2)
  - Asthenia [Unknown]
  - Cerebrovascular accident [Unknown]

NARRATIVE: CASE EVENT DATE: 20171004
